FAERS Safety Report 5102566-5 (Version None)
Quarter: 2006Q3

REPORT INFORMATION
  Report Type: 
  Country: None (occurrence: None)
  Receive Date: 20060912
  Receipt Date: 20060906
  Transmission Date: 20061208
  Serious: Yes (Other)
  Sender: FDA-Public Use
  Company Number: IT-GLAXOSMITHKLINE-B0437623A

PATIENT
  Age: 18 Year
  Sex: Male

DRUGS (2)
  1. AMOXICILLIN + CLAVULANATE POTASSIUM [Suspect]
     Indication: PHARYNGITIS
     Dosage: 1G PER DAY
     Route: 048
     Dates: start: 20060504, end: 20060512
  2. AZITHROMYCIN [Suspect]
     Indication: PHARYNGITIS
     Dosage: 500MG PER DAY
     Route: 048
     Dates: start: 20060524, end: 20060526

REACTIONS (2)
  - HEPATIC ENZYME ABNORMAL [None]
  - HEPATITIS [None]
